FAERS Safety Report 19706094 (Version 1)
Quarter: 2021Q3

REPORT INFORMATION
  Report Type: Other
  Country: TH (occurrence: TH)
  Receive Date: 20210817
  Receipt Date: 20210817
  Transmission Date: 20211014
  Serious: Yes (Hospitalization, Other)
  Sender: FDA-Public Use
  Company Number: TH-AJANTA PHARMA USA INC.-2115145

PATIENT
  Age: 30 Year
  Sex: Male

DRUGS (4)
  1. NORTRIPTYLINE HYDROCHLORIDE. [Concomitant]
     Active Substance: NORTRIPTYLINE HYDROCHLORIDE
  2. LAMOTRIGINE (ANDA 213271) [Suspect]
     Active Substance: LAMOTRIGINE
     Indication: BIPOLAR DISORDER
  3. CLONAZEPAM. [Concomitant]
     Active Substance: CLONAZEPAM
  4. OLANZAPINE. [Concomitant]
     Active Substance: OLANZAPINE

REACTIONS (2)
  - Seborrhoeic dermatitis [Recovering/Resolving]
  - Stevens-Johnson syndrome [Recovering/Resolving]
